FAERS Safety Report 9541317 (Version 1)
Quarter: 2013Q3

REPORT INFORMATION
  Report Type: Spontaneous
  Country: US (occurrence: US)
  Receive Date: 20130923
  Receipt Date: 20130923
  Transmission Date: 20140515
  Serious: No
  Sender: FDA-Public Use
  Company Number: US-009507513-1309USA005505

PATIENT
  Sex: Male

DRUGS (4)
  1. PEGINTRON [Suspect]
     Indication: HEPATITIS C
     Dosage: 0.5 ML, QW
     Dates: start: 1999, end: 2000
  2. PEGINTRON [Suspect]
     Dosage: 0.5 ML EVERY FRIDAY
     Dates: start: 20130807
  3. REBETOL [Suspect]
     Indication: HEPATITIS C
     Dosage: UNK
     Route: 048
     Dates: start: 1999, end: 2000
  4. REBETOL [Suspect]
     Dosage: UNK
     Dates: start: 20130807

REACTIONS (1)
  - Hepatitis C [Unknown]
